FAERS Safety Report 9209292 (Version 2)
Quarter: 2013Q2

REPORT INFORMATION
  Report Type: Spontaneous
  Country: JP (occurrence: JP)
  Receive Date: 20130404
  Receipt Date: 20130501
  Transmission Date: 20140414
  Serious: Yes (Other)
  Sender: FDA-Public Use
  Company Number: JP-ASTELLAS-2013JP004394

PATIENT
  Sex: Female

DRUGS (2)
  1. BETANIS [Suspect]
     Indication: HYPERTONIC BLADDER
     Dosage: 50 MG, UID/QD
     Route: 048
     Dates: start: 201301, end: 20130321
  2. BETANIS [Suspect]
     Indication: POLLAKIURIA
     Dosage: UNK
     Route: 048
     Dates: start: 20130423

REACTIONS (1)
  - Hallucination, visual [Not Recovered/Not Resolved]
